FAERS Safety Report 8344094-X (Version None)
Quarter: 2012Q2

REPORT INFORMATION
  Report Type: 
  Country: None (occurrence: None)
  Receive Date: 20120504
  Receipt Date: 20120424
  Transmission Date: 20120825
  Serious: Yes (Other)
  Sender: FDA-Public Use
  Company Number: 2012AT000123

PATIENT
  Sex: Male

DRUGS (1)
  1. ALPROSTADIL [Suspect]
     Indication: PERIPHERAL ARTERIAL OCCLUSIVE DISEASE
     Dosage: 20 UG, QID, IV
     Route: 042

REACTIONS (4)
  - DYSPNOEA [None]
  - LUNG DISORDER [None]
  - WEIGHT INCREASED [None]
  - OEDEMA [None]
